FAERS Safety Report 18279024 (Version 1)
Quarter: 2020Q3

REPORT INFORMATION
  Report Type: Report from Study
  Country: IT (occurrence: IT)
  Receive Date: 20200917
  Receipt Date: 20200917
  Transmission Date: 20201103
  Serious: Yes (Other)
  Sender: FDA-Public Use
  Company Number: IT-TEVA-2020-IT-1827663

PATIENT
  Age: 21 Year
  Sex: Male

DRUGS (2)
  1. MOXIFLOXACIN. [Suspect]
     Active Substance: MOXIFLOXACIN
     Indication: EAR PAIN
     Dosage: 1 DOSAGE FORM
     Route: 048
     Dates: start: 20200820, end: 20200820
  2. KETODOL  25 MG + 200 MG COMPRESSE [Concomitant]
     Active Substance: KETOPROFEN\SUCRALFATE
     Indication: EAR PAIN
     Dosage: 1 DOSAGE FORM
     Route: 048
     Dates: start: 20200820, end: 20200820

REACTIONS (3)
  - Sensation of foreign body [Recovering/Resolving]
  - Eyelid oedema [Recovering/Resolving]
  - Dyspnoea [Recovering/Resolving]

NARRATIVE: CASE EVENT DATE: 20200820
